FAERS Safety Report 6147906-3 (Version None)
Quarter: 2009Q2

REPORT INFORMATION
  Report Type: 
  Country: None (occurrence: None)
  Receive Date: 20090403
  Receipt Date: 20090319
  Transmission Date: 20091009
  Serious: Yes (Life-Threatening)
  Sender: FDA-Public Use
  Company Number: IDA-00190

PATIENT
  Age: 60 Year
  Sex: Female

DRUGS (9)
  1. PROPRANOLOL [Suspect]
     Indication: HYPOTENSION
     Dosage: .6 MG ONCE,  INTRAVENOUS (NOT OTHERWISE SPECIFIED) FORMULATION: INFUSION
     Route: 042
  2. PROPOFOL [Suspect]
     Indication: ANAESTHESIA
     Dosage: INDUCTION/ 4 MG/KG Q1H, INTRAVENOUS (NOT OTHERWISE SPECIFIED) FORMULATION: INFUSION
     Route: 042
  3. ALPROSTADIL [Suspect]
     Indication: HYPOTENSION
     Dosage: .03 UG/KG/MIN /.03 UG/KG/MIN
  4. FENTANYL [Concomitant]
  5. (FAMOTIDINL) [Concomitant]
  6. MEPERIDINE HCL [Concomitant]
  7. MIDAZOLAM HCL [Concomitant]
  8. ATROPINE SULFATE [Concomitant]
  9. VECURONIUM BROMIDE [Concomitant]

REACTIONS (11)
  - ARTERIOSPASM CORONARY [None]
  - ATRIOVENTRICULAR BLOCK [None]
  - CARDIAC ARREST [None]
  - DRUG INTERACTION [None]
  - ELECTROMECHANICAL DISSOCIATION [None]
  - MYDRIASIS [None]
  - NODAL ARRHYTHMIA [None]
  - PROCEDURAL COMPLICATION [None]
  - PUPILLARY REFLEX IMPAIRED [None]
  - SYNCOPE [None]
  - VENTRICULAR TACHYCARDIA [None]
